FAERS Safety Report 4860100-9 (Version None)
Quarter: 2005Q4

REPORT INFORMATION
  Report Type: 
  Country: None (occurrence: None)
  Receive Date: 20051219
  Receipt Date: 20050914
  Transmission Date: 20060501
  Serious: Yes (Hospitalization, Disabling)
  Sender: FDA-Public Use
  Company Number: US-MERCK-0509USA02119

PATIENT
  Age: 75 Year
  Sex: Male
  Weight: 109 kg

DRUGS (15)
  1. LOTREL [Concomitant]
     Indication: RHEUMATOID ARTHRITIS
     Route: 048
     Dates: start: 20020905, end: 20040901
  2. PLAVIX [Concomitant]
     Route: 065
     Dates: start: 20030303
  3. PROSCAR [Concomitant]
     Route: 065
  4. ASPIRIN [Concomitant]
     Route: 065
     Dates: start: 20010110
  5. ALLEGRA [Concomitant]
     Route: 065
  6. FLONASE [Concomitant]
     Route: 065
  7. DOXAZOSIN MESYLATE [Concomitant]
     Route: 065
  8. DICLOFENAC SODIUM [Concomitant]
     Route: 065
  9. LEXAPRO [Concomitant]
     Route: 065
  10. VIAGRA [Concomitant]
     Route: 065
  11. CIALIS [Concomitant]
     Route: 065
  12. BIAXIN [Concomitant]
     Route: 065
  13. BEXTRA [Concomitant]
     Route: 065
  14. ZOCOR [Concomitant]
     Indication: BLOOD CHOLESTEROL INCREASED
     Route: 065
     Dates: start: 20010302
  15. VIOXX [Suspect]
     Indication: RHEUMATOID ARTHRITIS
     Route: 048
     Dates: start: 20020905, end: 20040901

REACTIONS (4)
  - CHRONIC FATIGUE SYNDROME [None]
  - GASTROOESOPHAGEAL REFLUX DISEASE [None]
  - HERPES ZOSTER [None]
  - MYOCARDIAL INFARCTION [None]
